FAERS Safety Report 8859315 (Version 1)
Quarter: 2012Q4

REPORT INFORMATION
  Report Type: Spontaneous
  Country: IT (occurrence: None)
  Receive Date: 20121022
  Receipt Date: 20121022
  Transmission Date: 20130627
  Serious: Yes (Hospitalization)
  Sender: FDA-Public Use
  Company Number: 2012AP003350

PATIENT
  Age: 89 Year
  Sex: Female

DRUGS (1)
  1. QUETIAPINE FUMARATE (QUETIAPINE FUMARATE) [Suspect]
     Indication: PSYCHOMOTOR AGITATION
     Route: 048
     Dates: start: 20120820, end: 20120827

REACTIONS (2)
  - Pyrexia [None]
  - Sopor [None]
